FAERS Safety Report 15429814 (Version 1)
Quarter: 2018Q3

REPORT INFORMATION
  Report Type: Report from Study
  Country: PT (occurrence: PT)
  Receive Date: 20180926
  Receipt Date: 20180926
  Transmission Date: 20181010
  Serious: Yes (Life-Threatening, Hospitalization)
  Sender: FDA-Public Use
  Company Number: PT-TEVA-2018-PT-958610

PATIENT
  Age: 60 Year
  Sex: Male
  Weight: 55 kg

DRUGS (4)
  1. DEXAMETAZONA                       /00016001/ [Concomitant]
     Indication: PREMEDICATION
     Route: 042
     Dates: start: 20151221, end: 20151221
  2. CLEMASTINA [Concomitant]
     Indication: PREMEDICATION
     Route: 042
     Dates: start: 20151221, end: 20151221
  3. ERBITUX [Suspect]
     Active Substance: CETUXIMAB
     Indication: LARYNGEAL CANCER
     Route: 042
     Dates: start: 20151221, end: 20151221
  4. CISPLATIN. [Suspect]
     Active Substance: CISPLATIN
     Indication: LARYNGEAL CANCER
     Route: 065

REACTIONS (3)
  - Hypertension [Recovered/Resolved with Sequelae]
  - Cardiac arrest [Recovered/Resolved with Sequelae]
  - Tachycardia [Recovered/Resolved with Sequelae]

NARRATIVE: CASE EVENT DATE: 20151221
